FAERS Safety Report 19989872 (Version 1)
Quarter: 2021Q4

REPORT INFORMATION
  Report Type: Spontaneous
  Country: US (occurrence: US)
  Receive Date: 20211025
  Receipt Date: 20211025
  Transmission Date: 20220303
  Serious: No
  Sender: FDA-Public Use
  Company Number: US-CELGENE-USA-20211004497

PATIENT
  Sex: Female
  Weight: 59.47 kg

DRUGS (10)
  1. REVLIMID [Suspect]
     Active Substance: LENALIDOMIDE
     Indication: Plasma cell myeloma
     Dosage: 20 MG
     Route: 048
     Dates: start: 202107
  2. REVLIMID [Suspect]
     Active Substance: LENALIDOMIDE
     Dosage: 15 MG
     Route: 048
     Dates: start: 202110
  3. ESTRADIOL [Concomitant]
     Active Substance: ESTRADIOL
     Indication: Product used for unknown indication
     Route: 048
     Dates: start: 20210727
  4. VENCLEXTA [Concomitant]
     Active Substance: VENETOCLAX
     Indication: Product used for unknown indication
     Dosage: 200 MG
     Route: 048
     Dates: start: 20210727
  5. ACYCLOVIR [Concomitant]
     Active Substance: ACYCLOVIR
     Indication: Product used for unknown indication
     Dosage: 400 MG
     Route: 048
     Dates: start: 20210727
  6. LEVETIRACETAM [Concomitant]
     Active Substance: LEVETIRACETAM
     Indication: Product used for unknown indication
     Dosage: 750 MG
     Route: 048
     Dates: start: 20210727
  7. VITAMIN D [Concomitant]
     Active Substance: VITAMIN D NOS
     Indication: Product used for unknown indication
     Dosage: 25 MCG
     Route: 048
     Dates: start: 20210729
  8. CRESTOR [Concomitant]
     Active Substance: ROSUVASTATIN CALCIUM
     Indication: Product used for unknown indication
     Dosage: 10 MG
     Route: 048
     Dates: start: 20210729
  9. MAGNESIUM MALATE [Concomitant]
     Active Substance: MAGNESIUM MALATE
     Indication: Product used for unknown indication
     Dosage: 133 MG
     Route: 048
     Dates: start: 20210729
  10. CALCIUM\VITAMIN D [Concomitant]
     Active Substance: CALCIUM\VITAMIN D
     Indication: Product used for unknown indication
     Dosage: 1200
     Route: 048
     Dates: start: 20210729

REACTIONS (1)
  - Alopecia [Not Recovered/Not Resolved]
